FAERS Safety Report 21437306 (Version 1)
Quarter: 2022Q4

REPORT INFORMATION
  Report Type: Spontaneous
  Country: JP (occurrence: JP)
  Receive Date: 20221010
  Receipt Date: 20221010
  Transmission Date: 20230113
  Serious: Yes (Other)
  Sender: FDA-Public Use
  Company Number: JP-NOVARTISPH-NVSJ2022JP098748

PATIENT
  Sex: Female

DRUGS (3)
  1. CANAKINUMAB [Suspect]
     Active Substance: CANAKINUMAB
     Indication: Familial mediterranean fever
     Dosage: UNK
     Route: 065
  2. MESALAMINE [Concomitant]
     Active Substance: MESALAMINE
     Indication: Enterocolitis
     Dosage: UNK
     Route: 065
  3. PREDNISOLONE [Concomitant]
     Active Substance: PREDNISOLONE
     Indication: Enterocolitis
     Dosage: UNK
     Route: 065

REACTIONS (8)
  - Enterocolitis [Unknown]
  - Concomitant disease aggravated [Unknown]
  - Gastrointestinal erosion [Unknown]
  - Large intestinal ulcer [Unknown]
  - Rectal ulcer [Unknown]
  - Gastrointestinal tract mucosal discolouration [Unknown]
  - Diarrhoea [Unknown]
  - Abdominal pain [Unknown]
